FAERS Safety Report 7085075-6 (Version None)
Quarter: 2010Q4

REPORT INFORMATION
  Report Type: 
  Country: None (occurrence: None)
  Receive Date: 20101026
  Receipt Date: 20101019
  Transmission Date: 20110411
  Serious: Yes (Hospitalization)
  Sender: FDA-Public Use
  Company Number: OL-10-02

PATIENT
  Age: 86 Year
  Sex: Female

DRUGS (3)
  1. VITAMIN D [Suspect]
     Dosage: REFER INSERT, ROUTE ORAL
     Route: 048
  2. LEVOXYL [Concomitant]
  3. EXFORGE [Concomitant]

REACTIONS (1)
  - RASH [None]
